FAERS Safety Report 24958919 (Version 1)
Quarter: 2025Q1

REPORT INFORMATION
  Report Type: Spontaneous
  Country: FR (occurrence: FR)
  Receive Date: 20250212
  Receipt Date: 20250212
  Transmission Date: 20250408
  Serious: Yes (Hospitalization, Other)
  Sender: TAKEDA
  Company Number: FR-TAKEDA-2025TUS013336

PATIENT
  Age: 44 Year
  Sex: Female
  Weight: 80 kg

DRUGS (13)
  1. ALUNBRIG [Suspect]
     Active Substance: BRIGATINIB
     Indication: Lung adenocarcinoma stage IV
     Dosage: 90 MILLIGRAM, QD
     Dates: start: 20240223
  2. ALUNBRIG [Suspect]
     Active Substance: BRIGATINIB
     Dosage: 180 MILLIGRAM, QD
  3. DOLIPRANE [Concomitant]
     Active Substance: ACETAMINOPHEN
  4. VOGALENE [Concomitant]
     Active Substance: METOPIMAZINE
  5. FENOFIBRATE [Concomitant]
     Active Substance: FENOFIBRATE
     Dosage: 200 MILLIGRAM, QD
  6. FENOFIBRATE [Concomitant]
     Active Substance: FENOFIBRATE
     Dosage: 300 MILLIGRAM, QD
  7. INNOHEP [Concomitant]
     Active Substance: TINZAPARIN SODIUM
  8. PANTOPRAZOLE [Concomitant]
     Active Substance: PANTOPRAZOLE
     Dosage: 40 MILLIGRAM, QD
  9. NICOPATCH [Concomitant]
     Active Substance: NICOTINE
  10. ESOMEPRAZOLE [Concomitant]
     Active Substance: ESOMEPRAZOLE
     Dosage: 20 MILLIGRAM, QD
  11. GAVISCON [Concomitant]
     Active Substance: ALUMINUM HYDROXIDE\MAGNESIUM CARBONATE
  12. LANTUS [Concomitant]
     Active Substance: INSULIN GLARGINE
  13. NOVORAPID [Concomitant]
     Active Substance: INSULIN ASPART

REACTIONS (9)
  - Pancreatitis acute [Unknown]
  - Hypertriglyceridaemia [Unknown]
  - Morning sickness [Unknown]
  - Weight increased [Unknown]
  - Gastrooesophageal reflux disease [Unknown]
  - Hypercholesterolaemia [Unknown]
  - Hyperglycaemia [Unknown]
  - Myalgia [Unknown]
  - Muscle spasms [Unknown]

NARRATIVE: CASE EVENT DATE: 20241101
